FAERS Safety Report 4358885-3 (Version None)
Quarter: 2004Q2

REPORT INFORMATION
  Report Type: 
  Country: None (occurrence: None)
  Receive Date: 20040512
  Receipt Date: 20040426
  Transmission Date: 20050107
  Serious: Yes (Hospitalization)
  Sender: FDA-Public Use
  Company Number: EWC040438988

PATIENT
  Age: 68 Year
  Sex: Female

DRUGS (4)
  1. GEMZAR [Suspect]
     Dosage: 1.2 G OTHER
     Route: 042
     Dates: start: 20040211
  2. NAVELBINE [Concomitant]
  3. PRIMPERAN TAB [Concomitant]
  4. LORAZEPAM [Concomitant]

REACTIONS (1)
  - PANCREATITIS [None]
